FAERS Safety Report 17070237 (Version 1)
Quarter: 2019Q4

REPORT INFORMATION
  Report Type: Spontaneous
  Country: FR (occurrence: FR)
  Receive Date: 20191125
  Receipt Date: 20191125
  Transmission Date: 20200122
  Serious: Yes (Life-Threatening, Hospitalization)
  Sender: FDA-Public Use
  Company Number: FR-ACCORD-162166

PATIENT
  Age: 87 Year
  Sex: Female
  Weight: 60 kg

DRUGS (5)
  1. ALPRAZOLAM. [Suspect]
     Active Substance: ALPRAZOLAM
     Route: 048
     Dates: start: 20190228, end: 20190228
  2. MIANSERIN [Suspect]
     Active Substance: MIANSERIN
     Route: 048
     Dates: start: 20190228, end: 20190228
  3. AMLODIPINE [Suspect]
     Active Substance: AMLODIPINE BESYLATE
     Route: 048
     Dates: start: 20190228, end: 20190228
  4. IRBESARTAN. [Suspect]
     Active Substance: IRBESARTAN
     Route: 048
     Dates: start: 20190228, end: 20190228
  5. ZOPICLONE [Suspect]
     Active Substance: ZOPICLONE
     Route: 048
     Dates: start: 20190228, end: 20190228

REACTIONS (5)
  - Coma [Recovered/Resolved]
  - Shock [Recovered/Resolved]
  - Lactic acidosis [Recovered/Resolved]
  - Persecutory delusion [Recovered/Resolved]
  - Toxicity to various agents [Unknown]

NARRATIVE: CASE EVENT DATE: 20190228
